FAERS Safety Report 5099429-0 (Version None)
Quarter: 2006Q3

REPORT INFORMATION
  Report Type: 
  Country: None (occurrence: None)
  Receive Date: 20060905
  Receipt Date: 20060905
  Transmission Date: 20061208
  Serious: Yes (Hospitalization)
  Sender: FDA-Public Use
  Company Number: None

PATIENT
  Age: 48 Year
  Sex: Male
  Weight: 87.1 kg

DRUGS (6)
  1. EPTIFIBATIDE (INTEGNLIN) [Suspect]
     Indication: CORONARY ANGIOPLASTY
     Dosage: BOLUS AND INFUSION IV
     Route: 040
     Dates: start: 20060713, end: 20060714
  2. PLAVIX [Concomitant]
  3. ATORVASTATIN CALCIUM [Concomitant]
  4. METOPROLOL [Concomitant]
  5. ASPIRIN [Concomitant]
  6. BENICAR [Concomitant]

REACTIONS (2)
  - POST PROCEDURAL COMPLICATION [None]
  - THROMBOCYTOPENIA [None]
